FAERS Safety Report 10744164 (Version 1)
Quarter: 2015Q1

REPORT INFORMATION
  Report Type: Spontaneous
  Country: AU (occurrence: None)
  Receive Date: 20150126
  Receipt Date: 20150126
  Transmission Date: 20150721
  Serious: No
  Sender: FDA-Public Use
  Company Number: INT_00666_2015

PATIENT

DRUGS (3)
  1. CISPLATIN (CISPLATIN) (HQ SPECIALTY) [Suspect]
     Active Substance: CISPLATIN
     Indication: NON-SMALL CELL LUNG CANCER
     Dosage: 50 MG/M2, ON DAYS 1, 8, 29, AND 36
  2. RADIOTHERAPY [Suspect]
     Active Substance: RADIATION THERAPY
     Indication: NON-SMALL CELL LUNG CANCER
     Dosage: 50 GY TO 2 GY PER FRACTION, FIVE FRACTIONS A WEEK??
  3. ETOPOSIDE (ETOPOSIDE) [Suspect]
     Active Substance: ETOPOSIDE
     Indication: NON-SMALL CELL LUNG CANCER
     Dosage: 50 MG/M2 PER DAY, ON DAYS 1-5 AND 29-33?

REACTIONS (1)
  - Febrile neutropenia [None]
